FAERS Safety Report 6816605-4 (Version None)
Quarter: 2010Q3

REPORT INFORMATION
  Report Type: 
  Country: None (occurrence: None)
  Receive Date: 20100706
  Receipt Date: 20100622
  Transmission Date: 20110219
  Serious: Yes (Death, Hospitalization)
  Sender: FDA-Public Use
  Company Number: US-BAYER-201026118NA

PATIENT
  Age: 71 Year
  Sex: Male

DRUGS (4)
  1. LEUKINE [Suspect]
     Indication: PROSTATE CANCER METASTATIC
     Dosage: DAYS 1-14 OF EACH CYCLE
     Dates: start: 20070417, end: 20070612
  2. IPILIMUMAB [Suspect]
     Indication: PROSTATE CANCER METASTATIC
  3. PROCHLORPERAZINE [Concomitant]
     Dates: start: 20070614
  4. HYDROMORPHONE [Concomitant]
     Dates: start: 20070614

REACTIONS (1)
  - PULMONARY EMBOLISM [None]
